FAERS Safety Report 4490411-0 (Version None)
Quarter: 2004Q4

REPORT INFORMATION
  Report Type: 
  Country: None (occurrence: None)
  Receive Date: 20041102
  Receipt Date: 20040524
  Transmission Date: 20050328
  Serious: Yes (Death)
  Sender: FDA-Public Use
  Company Number: 200411794JP

PATIENT
  Age: 76 Year
  Sex: Female
  Weight: 54 kg

DRUGS (24)
  1. ARAVA [Suspect]
     Indication: RHEUMATOID ARTHRITIS
     Route: 048
     Dates: start: 20040317, end: 20040521
  2. BONALON [Suspect]
  3. PREDONINE [Suspect]
     Indication: RHEUMATOID ARTHRITIS
     Route: 048
     Dates: end: 20040522
  4. LASIX [Suspect]
     Indication: OEDEMA PERIPHERAL
     Route: 048
     Dates: end: 20040522
  5. MUCOSTA [Concomitant]
     Indication: GASTRITIS
     Route: 048
     Dates: end: 20040522
  6. AMLODIN [Concomitant]
     Indication: HYPERTENSION
     Route: 048
     Dates: end: 20040522
  7. TOYOFAROL [Concomitant]
     Indication: OSTEOPOROSIS
     Route: 048
     Dates: end: 20040522
  8. LANSOPRAZOLE [Concomitant]
     Indication: REFLUX OESOPHAGITIS
     Route: 048
     Dates: end: 20040522
  9. AMARYL [Concomitant]
     Indication: DIABETES MELLITUS
     Route: 048
     Dates: end: 20040522
  10. MARZULENE S [Concomitant]
     Indication: GASTRITIS
     Route: 048
     Dates: end: 20040522
  11. CALCIUM LACTATE [Concomitant]
     Indication: OSTEOPOROSIS
     Route: 048
     Dates: end: 20040522
  12. BUP-4 [Concomitant]
     Indication: POLLAKIURIA
     Route: 048
     Dates: end: 20040522
  13. HOKUNALIN [Concomitant]
     Indication: ASTHMA
     Route: 062
     Dates: start: 20040412, end: 20040531
  14. LENDORMIN [Concomitant]
     Indication: INSOMNIA
     Route: 048
     Dates: end: 20040522
  15. HALCION [Concomitant]
     Indication: INSOMNIA
     Route: 048
     Dates: end: 20040522
  16. BIOFERMIN [Concomitant]
     Indication: DIARRHOEA
     Route: 048
     Dates: start: 20040218, end: 20040420
  17. VOLTAREN SUPPOSITORIEN [Concomitant]
     Route: 054
  18. FLUTIDE DISKUS [Concomitant]
     Route: 055
  19. APHTASOLON [Concomitant]
     Indication: STOMATITIS
     Route: 062
     Dates: start: 20040329, end: 20040405
  20. FUNGIZONE [Concomitant]
     Indication: OESOPHAGEAL CANDIDIASIS
     Route: 048
     Dates: start: 20040413, end: 20040420
  21. TANNALBIN [Concomitant]
     Indication: DIARRHOEA
     Route: 048
     Dates: start: 20040218, end: 20040420
  22. METHOTREXATE [Concomitant]
     Indication: RHEUMATOID ARTHRITIS
     Dosage: DOSE: 2MG/WEEK
     Route: 048
     Dates: start: 20011219, end: 20040316
  23. SOLU-CORTEF [Concomitant]
     Indication: ASTHMA
     Route: 041
     Dates: start: 20040423, end: 20040427
  24. NEOPHYLLIN [Concomitant]
     Indication: ASTHMA
     Route: 041
     Dates: start: 20040423, end: 20040427

REACTIONS (20)
  - ALANINE AMINOTRANSFERASE INCREASED [None]
  - ANOREXIA [None]
  - ASPARTATE AMINOTRANSFERASE INCREASED [None]
  - BLOOD ALBUMIN DECREASED [None]
  - BLOOD LACTATE DEHYDROGENASE INCREASED [None]
  - BLOOD POTASSIUM DECREASED [None]
  - DYSPEPSIA [None]
  - DYSPNOEA [None]
  - GENERAL NUTRITION DISORDER [None]
  - GLUCOSE URINE PRESENT [None]
  - HYPOXIA [None]
  - IMMUNOSUPPRESSION [None]
  - LYMPHOCYTE PERCENTAGE DECREASED [None]
  - NAUSEA [None]
  - OESOPHAGEAL CANDIDIASIS [None]
  - PLATELET COUNT DECREASED [None]
  - PNEUMOCYSTIS CARINII PNEUMONIA [None]
  - PROTEIN TOTAL DECREASED [None]
  - RESPIRATORY DISORDER [None]
  - STOMATITIS [None]
